FAERS Safety Report 12571665 (Version 1)
Quarter: 2016Q3

REPORT INFORMATION
  Report Type: Spontaneous
  Country: US (occurrence: US)
  Receive Date: 20160719
  Receipt Date: 20160719
  Transmission Date: 20161109
  Serious: No
  Sender: FDA-Public Use
  Company Number: US-G+W LABS-GW2015US000001

PATIENT

DRUGS (2)
  1. CLINDAMYCIN PHOSPHATE. [Suspect]
     Active Substance: CLINDAMYCIN PHOSPHATE
     Dosage: UNK
  2. CLINDAMYCIN PHOSPHATE. [Suspect]
     Active Substance: CLINDAMYCIN PHOSPHATE
     Indication: SKIN DISORDER
     Dosage: UNK, TWICE DAILY
     Route: 061
     Dates: start: 20150528

REACTIONS (4)
  - Product substitution issue [None]
  - Product leakage [None]
  - Product packaging issue [None]
  - Accidental overdose [Unknown]

NARRATIVE: CASE EVENT DATE: 20151027
